FAERS Safety Report 20022278 (Version 2)
Quarter: 2021Q4

REPORT INFORMATION
  Report Type: Spontaneous
  Country: DE (occurrence: DE)
  Receive Date: 20211102
  Receipt Date: 20211204
  Transmission Date: 20220303
  Serious: Yes (Other)
  Sender: FDA-Public Use
  Company Number: DE-AUROBINDO-AUR-APL-2021-043736

PATIENT
  Age: 63 Year
  Sex: Female

DRUGS (13)
  1. DOCETAXEL [Suspect]
     Active Substance: DOCETAXEL
     Indication: Non-small cell lung cancer
     Dosage: UNK, 1 CYCLE
     Route: 065
     Dates: start: 202004
  2. DOCETAXEL [Suspect]
     Active Substance: DOCETAXEL
     Indication: Pain
  3. DOCETAXEL [Suspect]
     Active Substance: DOCETAXEL
     Indication: Non-small cell lung cancer stage IV
  4. DOCETAXEL [Suspect]
     Active Substance: DOCETAXEL
     Indication: Neoplasm progression
  5. HYPERICUM [Suspect]
     Active Substance: ST. JOHN^S WORT
     Indication: Non-small cell lung cancer
     Dosage: UNK
     Route: 065
  6. HYPERICUM [Suspect]
     Active Substance: ST. JOHN^S WORT
     Indication: Pain
  7. RAMUCIRUMAB [Suspect]
     Active Substance: RAMUCIRUMAB
     Indication: Non-small cell lung cancer
     Dosage: UNK
     Route: 065
     Dates: start: 202004
  8. RAMUCIRUMAB [Suspect]
     Active Substance: RAMUCIRUMAB
     Indication: Pain
  9. RAMUCIRUMAB [Suspect]
     Active Substance: RAMUCIRUMAB
     Indication: Non-small cell lung cancer stage IV
  10. RAMUCIRUMAB [Suspect]
     Active Substance: RAMUCIRUMAB
     Indication: Neoplasm progression
  11. PEMETREXED [Interacting]
     Active Substance: PEMETREXED
     Indication: Non-small cell lung cancer stage IV
     Dosage: UNK
     Route: 065
     Dates: start: 201905, end: 202004
  12. PEMBROLIZUMAB [Interacting]
     Active Substance: PEMBROLIZUMAB
     Indication: Non-small cell lung cancer stage IV
     Dosage: UNK
     Route: 065
     Dates: start: 201905, end: 202004
  13. CARBOPLATIN [Interacting]
     Active Substance: CARBOPLATIN
     Indication: Non-small cell lung cancer stage IV
     Dosage: UNK
     Route: 065
     Dates: start: 201905, end: 202004

REACTIONS (4)
  - Folliculitis [Recovered/Resolved]
  - Staphylococcal infection [Recovering/Resolving]
  - Skin toxicity [Recovering/Resolving]
  - Drug interaction [Recovered/Resolved]
